FAERS Safety Report 7100115-3 (Version None)
Quarter: 2010Q4

REPORT INFORMATION
  Report Type: 
  Country: None (occurrence: None)
  Receive Date: 20101112
  Receipt Date: 20100126
  Transmission Date: 20110411
  Serious: No
  Sender: FDA-Public Use
  Company Number: A0841938A

PATIENT
  Sex: Male

DRUGS (6)
  1. COREG [Suspect]
     Route: 048
  2. FAMOTIDINE [Suspect]
     Indication: DYSPEPSIA
     Route: 048
  3. PLAVIX [Concomitant]
  4. FUROSEMIDE [Concomitant]
  5. SPIRONOLACTONE [Concomitant]
  6. LASIX [Concomitant]

REACTIONS (2)
  - BLOOD PRESSURE DECREASED [None]
  - DRUG INTERACTION [None]
